FAERS Safety Report 7666852-7 (Version None)
Quarter: 2011Q3

REPORT INFORMATION
  Report Type: 
  Country: None (occurrence: None)
  Receive Date: 20110806
  Receipt Date: 20110720
  Transmission Date: 20111222
  Serious: No
  Sender: FDA-Public Use
  Company Number: US-ABBOTT-11P-163-0840382-00

PATIENT
  Sex: Female

DRUGS (5)
  1. PLAVIX [Concomitant]
     Indication: PRODUCT USED FOR UNKNOWN INDICATION
     Dosage: IN AM
     Route: 048
  2. ASPIRIN [Concomitant]
     Indication: PRODUCT USED FOR UNKNOWN INDICATION
     Dosage: 162MG IN AM AND 81MG AT BEDTIME
     Route: 048
  3. NIASPAN [Suspect]
     Indication: ARTERIOSCLEROSIS
     Dosage: AT BEDTIME
     Route: 048
     Dates: start: 20110701
  4. UNSPECIFIED MEDICATIONS [Concomitant]
     Indication: PRODUCT USED FOR UNKNOWN INDICATION
  5. NIASPAN [Suspect]
     Indication: ARTERIOSCLEROSIS
     Dosage: IN AM
     Route: 048
     Dates: start: 20110701

REACTIONS (1)
  - FLUSHING [None]
